FAERS Safety Report 8421417 (Version 3)
Quarter: 2012Q4

REPORT INFORMATION
  Report Type: 
  Country: IT (occurrence: IT)
  Receive Date: 20120222
  Receipt Date: 20121004
  Transmission Date: 20130627
  Serious: Yes (Disabling, Other)
  Sender: FDA-Public Use
  Company Number: PHHY2012IT014276

PATIENT
  Age: 13 None
  Sex: Male

DRUGS (2)
  1. EXJADE [Suspect]
     Indication: CHELATION THERAPY
     Dosage: 1500 mg, Daily
     Route: 048
     Dates: start: 20081013, end: 20120114
  2. EXJADE [Suspect]
     Indication: THALASSAEMIA BETA

REACTIONS (4)
  - Arthralgia [Unknown]
  - Abasia [Recovered/Resolved]
  - Fatigue [Recovering/Resolving]
  - Bone swelling [Unknown]
